FAERS Safety Report 25030983 (Version 2)
Quarter: 2025Q1

REPORT INFORMATION
  Report Type: Spontaneous
  Country: GB (occurrence: GB)
  Receive Date: 20250303
  Receipt Date: 20250328
  Transmission Date: 20250409
  Serious: Yes (Other)
  Sender: GILEAD
  Company Number: GB-GILEAD-2025-0705541

PATIENT
  Age: 42 Year
  Sex: Male

DRUGS (7)
  1. DESCOVY [Suspect]
     Active Substance: EMTRICITABINE\TENOFOVIR ALAFENAMIDE FUMARATE
     Indication: HIV infection
     Dosage: STANDARD DOSE, QD
     Route: 065
  2. NEVIRAPINE [Concomitant]
     Active Substance: NEVIRAPINE
  3. FLUTIFORM [Concomitant]
     Active Substance: FLUTIFORM
  4. BRICANYL [Concomitant]
     Active Substance: TERBUTALINE SULFATE
  5. TADALAFIL [Concomitant]
     Active Substance: TADALAFIL
  6. CREON [Concomitant]
     Active Substance: PANCRELIPASE AMYLASE\PANCRELIPASE LIPASE\PANCRELIPASE PROTEASE
  7. CREON [Concomitant]
     Active Substance: PANCRELIPASE AMYLASE\PANCRELIPASE LIPASE\PANCRELIPASE PROTEASE

REACTIONS (2)
  - Pancreatitis chronic [Unknown]
  - Product label issue [Unknown]

NARRATIVE: CASE EVENT DATE: 20250106
